FAERS Safety Report 7422579-8 (Version None)
Quarter: 2011Q2

REPORT INFORMATION
  Report Type: 
  Country: None (occurrence: None)
  Receive Date: 20110419
  Receipt Date: 20110408
  Transmission Date: 20111010
  Serious: Yes (Hospitalization)
  Sender: FDA-Public Use
  Company Number: US-JNJFOC-20110404289

PATIENT
  Sex: Male
  Weight: 120.2 kg

DRUGS (7)
  1. FENTANYL-100 [Suspect]
     Indication: PAIN
     Route: 062
  2. LYRICA [Concomitant]
     Indication: PAIN
     Route: 048
  3. NEXIUM [Concomitant]
     Indication: HERNIA
     Route: 048
  4. DURAGESIC [Suspect]
     Route: 062
  5. NORCO [Concomitant]
     Indication: BREAKTHROUGH PAIN
     Dosage: AS NEEDED
     Route: 048
  6. DURAGESIC [Suspect]
     Indication: PAIN
     Route: 062
  7. XANAX [Concomitant]
     Indication: PRODUCT USED FOR UNKNOWN INDICATION
     Dosage: AS NEEDED
     Route: 048

REACTIONS (7)
  - PULSE ABSENT [None]
  - PAIN IN EXTREMITY [None]
  - INFECTION [None]
  - FOOT OPERATION [None]
  - JOINT CREPITATION [None]
  - MUSCULAR WEAKNESS [None]
  - INAPPROPRIATE SCHEDULE OF DRUG ADMINISTRATION [None]
